FAERS Safety Report 11101240 (Version 1)
Quarter: 2015Q2

REPORT INFORMATION
  Report Type: Report from Study
  Country: US (occurrence: US)
  Receive Date: 20150508
  Receipt Date: 20150508
  Transmission Date: 20150821
  Serious: Yes (Other)
  Sender: FDA-Public Use
  Company Number: US-SA-2015SA059577

PATIENT
  Age: 54 Year
  Sex: Female

DRUGS (1)
  1. RENVELA [Suspect]
     Active Substance: SEVELAMER CARBONATE
     Indication: HYPERPHOSPHATAEMIA
     Dosage: DOSE: 3200 MG FOUR TIMES A DAY
     Route: 048

REACTIONS (3)
  - Drug administration error [Unknown]
  - Decreased appetite [Unknown]
  - Obstruction gastric [Unknown]
